FAERS Safety Report 4943409-X (Version None)
Quarter: 2006Q1

REPORT INFORMATION
  Report Type: 
  Country: None (occurrence: None)
  Receive Date: 20060309
  Receipt Date: 20060211
  Transmission Date: 20060701
  Serious: Yes (Other)
  Sender: FDA-Public Use
  Company Number: 2006020826

PATIENT
  Age: 54 Year
  Sex: Male

DRUGS (5)
  1. ROGAINE [Suspect]
     Indication: HYPOTRICHOSIS
     Dosage: TWICE DAILY, TOPICAL
     Route: 061
     Dates: start: 19830101
  2. MINOXIDIL [Suspect]
     Indication: HYPOTRICHOSIS
     Dosage: TWICE DAILY, TOPICAL
     Route: 061
     Dates: start: 19830101
  3. FINASTERIDE [Suspect]
     Indication: ALOPECIA
     Dosage: 1 MG ONCE DAILY, ORAL
     Route: 048
  4. SIMVASTATIN [Concomitant]
  5. NICOTINIC ACID [Concomitant]

REACTIONS (4)
  - BASAL CELL CARCINOMA [None]
  - DRUG INEFFECTIVE [None]
  - NEOPLASM SKIN [None]
  - PHOTODERMATOSIS [None]
